FAERS Safety Report 16464519 (Version 1)
Quarter: 2019Q2

REPORT INFORMATION
  Report Type: Spontaneous
  Country: RO (occurrence: RO)
  Receive Date: 20190621
  Receipt Date: 20190621
  Transmission Date: 20190711
  Serious: Yes (Other)
  Sender: FDA-Public Use
  Company Number: PHHY2019RO140212

PATIENT
  Age: 59 Year
  Sex: Female

DRUGS (5)
  1. FLUDARABINE [Suspect]
     Active Substance: FLUDARABINE PHOSPHATE
     Indication: CHRONIC LYMPHOCYTIC LEUKAEMIA
     Route: 065
  2. ACICLOVIR [Concomitant]
     Active Substance: ACYCLOVIR
     Indication: EVIDENCE BASED TREATMENT
     Route: 042
  3. FLUCONAZOL [Concomitant]
     Active Substance: FLUCONAZOLE
     Indication: EVIDENCE BASED TREATMENT
     Route: 042
  4. CEFTRIAXONE. [Concomitant]
     Active Substance: CEFTRIAXONE
     Indication: EVIDENCE BASED TREATMENT
     Route: 042
  5. CIPROFLOXACIN. [Concomitant]
     Active Substance: CIPROFLOXACIN
     Indication: EVIDENCE BASED TREATMENT
     Route: 042

REACTIONS (12)
  - Encephalitis [Unknown]
  - Agitation [Recovered/Resolved]
  - Sepsis [Unknown]
  - Confusional state [Recovered/Resolved]
  - Muscular weakness [Unknown]
  - Extensor plantar response [Recovered/Resolved]
  - Meningism [Recovered/Resolved]
  - Obesity [Unknown]
  - Listeriosis [Unknown]
  - Pyrexia [Recovered/Resolved]
  - Kernig^s sign [Recovered/Resolved]
  - Haemolytic anaemia [Unknown]
